FAERS Safety Report 8100708 (Version 3)
Quarter: 2020Q2

REPORT INFORMATION
  Report Type: Spontaneous
  Country: GB (occurrence: GB)
  Receive Date: 20110822
  Receipt Date: 20200610
  Transmission Date: 20200714
  Serious: Yes (Life-Threatening, Hospitalization)
  Sender: FDA-Public Use
  Company Number: GB-PFIZER INC-2011189062

PATIENT
  Age: 73 Year
  Sex: Female
  Weight: 68 kg

DRUGS (3)
  1. AMOXICILLIN. [Suspect]
     Active Substance: AMOXICILLIN
     Indication: TOOTH DISORDER
     Dosage: UNK
     Dates: start: 20070619
  2. METRONIDAZOLE. [Suspect]
     Active Substance: METRONIDAZOLE
     Indication: TOOTH ABSCESS
     Dosage: UNK
     Route: 048
     Dates: start: 20070619, end: 20070619
  3. IBUPROFEN. [Concomitant]
     Active Substance: IBUPROFEN
     Indication: TOOTH DISORDER
     Dosage: UNK
     Dates: start: 20070619

REACTIONS (1)
  - Anaphylactic shock [Recovered/Resolved]

NARRATIVE: CASE EVENT DATE: 20070619
